FAERS Safety Report 10057072 (Version 5)
Quarter: 2014Q3

REPORT INFORMATION
  Report Type: Spontaneous
  Country: JP (occurrence: JP)
  Receive Date: 20140403
  Receipt Date: 20140702
  Transmission Date: 20150326
  Serious: Yes (Death, Other)
  Sender: FDA-Public Use
  Company Number: JP-OTSUKA-JP-2014-12646

PATIENT
  Age: 75 Year
  Sex: Male

DRUGS (19)
  1. SAMSCA [Suspect]
     Active Substance: TOLVAPTAN
     Indication: ASCITES
  2. LUPRAC [Suspect]
     Active Substance: TORSEMIDE
     Indication: PRODUCT USED FOR UNKNOWN INDICATION
     Dosage: 2 MG MILLIGRAM(S), DAILY DOSE
     Route: 048
     Dates: start: 20140308, end: 20140313
  3. HISHIPHAGEN C [Concomitant]
     Dosage: 40 ML MILLILITRE(S), DAILY DOSE
     Route: 042
     Dates: start: 20140304, end: 20140317
  4. SAMSCA [Suspect]
     Active Substance: TOLVAPTAN
     Indication: HEPATIC HYDROTHORAX
     Dosage: 3.75 MG MILLIGRAM(S), DAILY DOSE
     Route: 048
     Dates: start: 20140308, end: 20140315
  5. URSO [Concomitant]
     Active Substance: URSODIOL
     Dosage: UNK
     Route: 048
     Dates: start: 20140304, end: 20140315
  6. BIOFERMIN [Concomitant]
     Active Substance: BACILLUS SUBTILIS\LACTOBACILLUS ACIDOPHILUS\STREPTOCOCCUS FAECAIS
     Dosage: UNK
     Route: 048
     Dates: start: 20140304, end: 20140315
  7. AMINOLEBAN EN [Concomitant]
     Active Substance: UNSPECIFIED INGREDIENT
     Dosage: UNK
     Route: 048
     Dates: start: 20140304, end: 20140315
  8. SPIRONOLACTONE. [Suspect]
     Active Substance: SPIRONOLACTONE
     Indication: PRODUCT USED FOR UNKNOWN INDICATION
     Dosage: 50 MG MILLIGRAM(S), DAILY DOSE
     Route: 048
     Dates: start: 20140304, end: 20140315
  9. FAMOTIDINE. [Concomitant]
     Active Substance: FAMOTIDINE
     Dosage: UNK
     Route: 048
     Dates: start: 20140304, end: 20140315
  10. ALBUMINAR [Concomitant]
     Active Substance: ALBUMIN (HUMAN)
     Dosage: 2 DF DOSAGE FORM, DAILY DOSE
     Route: 041
     Dates: start: 20140306, end: 20140313
  11. BENIDIPINE HYDROCHLORIDE [Concomitant]
     Active Substance: BENIDIPINE HYDROCHLORIDE
     Dosage: UNK
     Route: 048
     Dates: start: 20140304, end: 20140315
  12. FLUITRAN [Concomitant]
     Active Substance: TRICHLORMETHIAZIDE
     Dosage: UNK
     Route: 048
     Dates: start: 20140304, end: 20140315
  13. SANMEL [Concomitant]
     Dosage: UNK
     Route: 048
     Dates: start: 20140304, end: 20140315
  14. SAMSCA [Suspect]
     Active Substance: TOLVAPTAN
     Indication: OEDEMA DUE TO HEPATIC DISEASE
     Dosage: 7.5 MG MILLIGRAM(S), DAILY DOSE
     Route: 048
     Dates: start: 20140304, end: 20140305
  15. FUROSEMIDE. [Suspect]
     Active Substance: FUROSEMIDE
     Indication: PRODUCT USED FOR UNKNOWN INDICATION
     Dosage: 80 MG MILLIGRAM(S), DAILY DOSE
     Route: 048
     Dates: start: 20140304, end: 20140306
  16. LICKLE [Concomitant]
     Active Substance: ISOLEUCINE\LEUCINE\VALINE
     Dosage: UNK
     Route: 048
     Dates: start: 20140304, end: 20140315
  17. SAMSCA [Suspect]
     Active Substance: TOLVAPTAN
     Indication: CARDIAC FAILURE
     Dosage: 15 MG MILLIGRAM(S), DAILY DOSE
     Route: 048
     Dates: start: 20140306, end: 20140306
  18. SAMSCA [Suspect]
     Active Substance: TOLVAPTAN
     Indication: RENAL FAILURE
     Dosage: 7.5 MG MILLIGRAM(S), DAILY DOSE
     Route: 048
     Dates: start: 20140307, end: 20140307
  19. FUROSEMIDE. [Suspect]
     Active Substance: FUROSEMIDE
     Dosage: 40 MG MILLIGRAM(S), DAILY DOSE
     Route: 048
     Dates: start: 20140314, end: 20140315

REACTIONS (5)
  - Hepatic failure [Unknown]
  - Renal failure [Unknown]
  - Blood urea increased [Fatal]
  - Hepatorenal syndrome [Fatal]
  - Thirst [Unknown]

NARRATIVE: CASE EVENT DATE: 20140308
